FAERS Safety Report 6563566-1 (Version None)
Quarter: 2010Q1

REPORT INFORMATION
  Report Type: 
  Country: None (occurrence: None)
  Receive Date: 20100130
  Receipt Date: 20091221
  Transmission Date: 20100710
  Serious: No
  Sender: FDA-Public Use
  Company Number: US-ABBOTT-09P-163-0615731-00

PATIENT
  Sex: Male
  Weight: 74.002 kg

DRUGS (5)
  1. HUMIRA [Suspect]
     Indication: CROHN'S DISEASE
     Route: 058
     Dates: start: 20081001, end: 20091101
  2. HUMIRA [Suspect]
     Indication: RHEUMATOID ARTHRITIS
     Route: 058
  3. KEPPRA [Concomitant]
     Indication: EPILEPSY
     Route: 048
  4. DEPAKOTE ER [Concomitant]
     Indication: EPILEPSY
     Route: 048
  5. PRISTIQ [Concomitant]
     Indication: DEPRESSION
     Route: 048

REACTIONS (8)
  - ARTHRALGIA [None]
  - CROHN'S DISEASE [None]
  - DIARRHOEA [None]
  - DRUG INEFFECTIVE [None]
  - MUSCLE SPASMS [None]
  - NAUSEA [None]
  - RHEUMATOID ARTHRITIS [None]
  - WEIGHT DECREASED [None]
